FAERS Safety Report 5493324-0 (Version None)
Quarter: 2007Q4

REPORT INFORMATION
  Report Type: 
  Country: None (occurrence: None)
  Receive Date: 20071023
  Receipt Date: 20070521
  Transmission Date: 20080405
  Serious: No
  Sender: FDA-Public Use
  Company Number: US-BRISTOL-MYERS SQUIBB COMPANY-13786975

PATIENT

DRUGS (1)
  1. KENALOG-40 [Suspect]
     Route: 031

REACTIONS (2)
  - HYPERKERATOSIS [None]
  - INFLAMMATION [None]
